FAERS Safety Report 23043203 (Version 2)
Quarter: 2024Q1

REPORT INFORMATION
  Report Type: Report from Study
  Country: US (occurrence: US)
  Receive Date: 20231009
  Receipt Date: 20240130
  Transmission Date: 20240410
  Serious: Yes (Other)
  Sender: FDA-Public Use
  Company Number: US-002147023-NVSC2023US216058

PATIENT
  Sex: Male

DRUGS (1)
  1. RYDAPT [Suspect]
     Active Substance: MIDOSTAURIN
     Indication: Product used for unknown indication
     Dosage: 1 DOSAGE FORM, QD (1 PILL)
     Route: 065

REACTIONS (4)
  - Leukaemia [Unknown]
  - Macular degeneration [Unknown]
  - Vision blurred [Unknown]
  - Product availability issue [Unknown]
